FAERS Safety Report 4355194-3 (Version None)
Quarter: 2004Q2

REPORT INFORMATION
  Report Type: 
  Country: None (occurrence: None)
  Receive Date: 20040510
  Receipt Date: 20040414
  Transmission Date: 20050107
  Serious: Yes (Hospitalization)
  Sender: FDA-Public Use
  Company Number: US-BRISTOL-MYERS SQUIBB COMPANY-12559936

PATIENT
  Age: 65 Year
  Sex: Male
  Weight: 92 kg

DRUGS (10)
  1. CYTOXAN [Suspect]
     Indication: NON-HODGKIN'S LYMPHOMA
     Dosage: ADDITIONAL THERAPY DATES: 29-DEC-2003, 26-JAN-2004, 23-FEB-2004
     Route: 042
     Dates: start: 20040322, end: 20040322
  2. RITUXAN [Suspect]
     Indication: NON-HODGKIN'S LYMPHOMA
     Dosage: ADDITIONAL THERAPY DATES: 22-DEC-2003, 19-JAN-2004, 16-FEB-2004
     Dates: start: 20040322, end: 20040322
  3. DIPHENHYDRAMINE HCL [Concomitant]
     Indication: PREMEDICATION
     Route: 048
  4. TYLENOL (CAPLET) [Concomitant]
     Indication: PREMEDICATION
     Dosage: DOSE VALUE 10-GRAINS
     Route: 048
  5. ANZEMET [Concomitant]
     Indication: PREMEDICATION
     Route: 042
  6. DEXAMETHASONE [Concomitant]
     Indication: PREMEDICATION
     Route: 048
  7. COUMADIN [Concomitant]
     Dosage: VARYING DOSES
  8. ATENOLOL [Concomitant]
  9. GLYBURIDE [Concomitant]
  10. HYDROCHLOROTHIAZIDE [Concomitant]

REACTIONS (1)
  - CRYPTOGENIC ORGANIZING PNEUMONIA [None]
